FAERS Safety Report 9648772 (Version 2)
Quarter: 2013Q4

REPORT INFORMATION
  Report Type: Report from Study
  Country: DE (occurrence: DE)
  Receive Date: 20131028
  Receipt Date: 20131028
  Transmission Date: 20140711
  Serious: Yes (Hospitalization)
  Sender: FDA-Public Use
  Company Number: PHHO2010DE09956

PATIENT
  Sex: 0

DRUGS (3)
  1. ERL 080A [Suspect]
     Indication: RENAL TRANSPLANT
     Dosage: 720 MG, UNK
     Route: 048
     Dates: start: 20100623, end: 20100701
  2. COMPARATOR PROGRAF [Interacting]
     Route: 048
     Dates: start: 20100623, end: 20100701
  3. ERYTHROMYCIN [Interacting]

REACTIONS (3)
  - Drug interaction [Not Recovered/Not Resolved]
  - Convulsion [Recovered/Resolved]
  - Hypoxia [Recovered/Resolved]
